FAERS Safety Report 10989307 (Version 1)
Quarter: 2015Q2

REPORT INFORMATION
  Report Type: Spontaneous
  Country: US (occurrence: US)
  Receive Date: 20150406
  Receipt Date: 20150406
  Transmission Date: 20150821
  Serious: Yes (Other)
  Sender: FDA-Public Use
  Company Number: US-ROCHE-1560077

PATIENT
  Age: 16 Year
  Sex: Male

DRUGS (1)
  1. TAMIFLU [Suspect]
     Active Substance: OSELTAMIVIR PHOSPHATE
     Indication: INFLUENZA
     Route: 065

REACTIONS (6)
  - Suicidal ideation [Unknown]
  - Crying [Unknown]
  - Depression [Unknown]
  - Tremor [Unknown]
  - Confusional state [Unknown]
  - Abnormal behaviour [Unknown]
